FAERS Safety Report 22339152 (Version 2)
Quarter: 2024Q3

REPORT INFORMATION
  Report Type: Report from Study
  Country: US (occurrence: US)
  Receive Date: 20230518
  Receipt Date: 20240802
  Transmission Date: 20241017
  Serious: Yes (Hospitalization, Other)
  Sender: JAZZ
  Company Number: US-JAZZ PHARMACEUTICALS-2023-US-007193

PATIENT
  Age: 49 Year
  Sex: Female

DRUGS (10)
  1. XYWAV [Suspect]
     Active Substance: CALCIUM OXYBATE\MAGNESIUM OXYBATE\POTASSIUM OXYBATE\SODIUM OXYBATE
     Indication: Hypersomnia
     Dosage: 4 GRAM, BID
  2. PANTOPRAZOLE SODIUM [Concomitant]
     Active Substance: PANTOPRAZOLE SODIUM
     Indication: Product used for unknown indication
     Dosage: UNK
     Dates: start: 20210506
  3. VITAMIN B12 [Concomitant]
     Active Substance: CYANOCOBALAMIN
     Indication: Product used for unknown indication
     Dosage: UNK
     Dates: start: 20230101
  4. VITAMIN D3 [Concomitant]
     Active Substance: CHOLECALCIFEROL
     Indication: Product used for unknown indication
     Dosage: UNK
     Dates: start: 20221201
  5. LEVOTHYROXINE [Concomitant]
     Active Substance: LEVOTHYROXINE\LEVOTHYROXINE SODIUM
     Indication: Product used for unknown indication
     Dosage: 75
  6. LAMICTAL [Concomitant]
     Active Substance: LAMOTRIGINE
     Indication: Anxiety
     Dosage: UNK
  7. LAMICTAL [Concomitant]
     Active Substance: LAMOTRIGINE
     Indication: Depression
  8. CELECOXIB [Concomitant]
     Active Substance: CELECOXIB
     Indication: Anxiety
     Dosage: UNK
  9. CELECOXIB [Concomitant]
     Active Substance: CELECOXIB
     Indication: Depression
  10. CELLCEPT [Concomitant]
     Active Substance: MYCOPHENOLATE MOFETIL
     Dosage: UNK

REACTIONS (3)
  - COVID-19 [Recovered/Resolved]
  - Neuropathy peripheral [Unknown]
  - Arthropathy [Unknown]

NARRATIVE: CASE EVENT DATE: 20230601
